FAERS Safety Report 8018070-0 (Version None)
Quarter: 2012Q1

REPORT INFORMATION
  Report Type: 
  Country: None (occurrence: None)
  Receive Date: 20120103
  Receipt Date: 20111228
  Transmission Date: 20120608
  Serious: Yes (Death)
  Sender: FDA-Public Use
  Company Number: US-CELGENEUS-163-21880-11123541

PATIENT
  Sex: Male

DRUGS (4)
  1. REVLIMID [Suspect]
     Dosage: 5MG-10MG
     Route: 048
     Dates: start: 20090901
  2. REVLIMID [Suspect]
     Indication: MULTIPLE MYELOMA
     Dosage: 25 MILLIGRAM
     Route: 048
     Dates: start: 20081101
  3. REVLIMID [Suspect]
     Dosage: 25 MILLIGRAM
     Dates: start: 20111001
  4. REVLIMID [Suspect]
     Dosage: 15MG-10MG
     Route: 048
     Dates: start: 20081201

REACTIONS (1)
  - DEATH [None]
